FAERS Safety Report 7698757-X (Version None)
Quarter: 2011Q3

REPORT INFORMATION
  Report Type: 
  Country: None (occurrence: None)
  Receive Date: 20110819
  Receipt Date: 20110810
  Transmission Date: 20111222
  Serious: Yes (Other)
  Sender: FDA-Public Use
  Company Number: GB-JNJFOC-20110805794

PATIENT
  Sex: Male

DRUGS (2)
  1. ROGAINE EXTRA STRENGTH (FOR MEN) [Suspect]
     Indication: ALOPECIA
     Route: 061
     Dates: start: 20110101
  2. ROGAINE EXTRA STRENGTH (FOR MEN) [Suspect]
     Route: 061

REACTIONS (9)
  - HYPERSENSITIVITY [None]
  - APPLICATION SITE RASH [None]
  - PAIN [None]
  - IMPAIRED WORK ABILITY [None]
  - EYE SWELLING [None]
  - INFECTED SKIN ULCER [None]
  - DRY SKIN [None]
  - VISUAL IMPAIRMENT [None]
  - RASH [None]
